FAERS Safety Report 6680669-1 (Version None)
Quarter: 2010Q2

REPORT INFORMATION
  Report Type: 
  Country: None (occurrence: None)
  Receive Date: 20100414
  Receipt Date: 20100113
  Transmission Date: 20101027
  Serious: Yes (Other)
  Sender: FDA-Public Use
  Company Number: BR-PFIZER INC-2010005237

PATIENT
  Sex: Male

DRUGS (4)
  1. FRONTAL [Suspect]
     Indication: INSOMNIA
     Dosage: 1.5 MG, IN A SINGLE DOSE
     Route: 048
     Dates: start: 20100113
  2. FRONTAL [Suspect]
     Dosage: 0.25 MG, UNK
     Route: 048
     Dates: start: 20090101
  3. FRONTAL [Suspect]
     Dosage: 2 TABLETS DAILY (IN THE MORNING AND AT NIGHT)
     Dates: start: 20090101
  4. LITHIUM [Concomitant]
     Dosage: UNK

REACTIONS (2)
  - INCORRECT DOSE ADMINISTERED [None]
  - SUICIDAL IDEATION [None]
